FAERS Safety Report 18099087 (Version 2)
Quarter: 2020Q4

REPORT INFORMATION
  Report Type: Report from Study
  Country: BR (occurrence: BR)
  Receive Date: 20200731
  Receipt Date: 20201006
  Transmission Date: 20210113
  Serious: Yes (Hospitalization)
  Sender: FDA-Public Use
  Company Number: BR-BIOGEN-2020BI00901861

PATIENT
  Age: 28 Year
  Sex: Female

DRUGS (6)
  1. ADDERA (VITAMIN D) [Concomitant]
     Indication: INFECTION PROPHYLAXIS
     Route: 065
  2. GABAPENTIN. [Concomitant]
     Active Substance: GABAPENTIN
     Indication: URINARY TRACT DISORDER
     Route: 065
  3. DEPAKOTE [Concomitant]
     Active Substance: DIVALPROEX SODIUM
     Indication: PAIN
     Route: 065
  4. TYSABRI [Suspect]
     Active Substance: NATALIZUMAB
     Indication: MULTIPLE SCLEROSIS
     Route: 042
     Dates: start: 20200301
  5. INILOK [Concomitant]
     Indication: GASTROINTESTINAL DISORDER PROPHYLAXIS
     Route: 065
  6. ESCILEX [Concomitant]
     Indication: DEPRESSION
     Route: 065

REACTIONS (2)
  - Headache [Not Recovered/Not Resolved]
  - Memory impairment [Not Recovered/Not Resolved]

NARRATIVE: CASE EVENT DATE: 202007
